FAERS Safety Report 13920833 (Version 1)
Quarter: 2017Q3

REPORT INFORMATION
  Report Type: Spontaneous
  Country: TR (occurrence: TR)
  Receive Date: 20170830
  Receipt Date: 20170830
  Transmission Date: 20171127
  Serious: Yes (Other)
  Sender: FDA-Public Use
  Company Number: PHHY2017TR125722

PATIENT
  Age: 49 Year
  Sex: Female

DRUGS (1)
  1. IMATINIB [Suspect]
     Active Substance: IMATINIB
     Indication: GASTROINTESTINAL STROMAL TUMOUR
     Route: 065

REACTIONS (5)
  - Second primary malignancy [Unknown]
  - Gastrointestinal stromal tumour [Unknown]
  - Ovarian endometrioid carcinoma [Unknown]
  - Endometrial stromal sarcoma [Unknown]
  - Recurrent cancer [Unknown]
